FAERS Safety Report 4676440-2 (Version None)
Quarter: 2005Q2

REPORT INFORMATION
  Report Type: 
  Country: None (occurrence: None)
  Receive Date: 20050527
  Receipt Date: 20050517
  Transmission Date: 20051028
  Serious: Yes (Hospitalization, Other)
  Sender: FDA-Public Use
  Company Number: US-JNJFOC-20050504436

PATIENT
  Sex: Female

DRUGS (4)
  1. DOXIL [Suspect]
     Dosage: REDUCE DOSE OF 30MG/M2
     Route: 042
  2. DOXIL [Suspect]
     Indication: MULTIPLE MYELOMA
     Dosage: 40 MG/M2 EVERY 3-4 WEEKS FOR 2 CYCLES
     Route: 042
  3. NEURONTIN [Concomitant]
  4. ACE INHIBITORS [Concomitant]

REACTIONS (7)
  - ASPARTATE AMINOTRANSFERASE INCREASED [None]
  - BILIRUBIN CONJUGATED INCREASED [None]
  - BLOOD BILIRUBIN INCREASED [None]
  - BLOOD CREATININE INCREASED [None]
  - FLUID OVERLOAD [None]
  - JAUNDICE [None]
  - PROTEIN TOTAL DECREASED [None]
